FAERS Safety Report 4821910-7 (Version None)
Quarter: 2005Q4

REPORT INFORMATION
  Report Type: 
  Country: None (occurrence: None)
  Receive Date: 20051103
  Receipt Date: 20051024
  Transmission Date: 20060501
  Serious: Yes (Hospitalization, Other)
  Sender: FDA-Public Use
  Company Number: 2005112429

PATIENT
  Age: 57 Year
  Sex: Female
  Weight: 70 kg

DRUGS (18)
  1. RELPAX [Suspect]
     Indication: MIGRAINE
     Dosage: 40 MG (AS NEEDED), ORAL
     Route: 048
     Dates: start: 20050713
  2. VOLTAREN [Suspect]
     Indication: PAIN
     Dates: start: 20050713
  3. ALL OTHER THERAPEUTIC PRODUCTS (ALL OTHER THERAPEUTIC PRODUCTS) [Suspect]
     Indication: ILL-DEFINED DISORDER
  4. AMITRIPTYLINE HCL [Concomitant]
  5. DORAL [Concomitant]
  6. ROHYPNOL (FLNITRAZEOPAME) [Concomitant]
  7. VEGETAMIN B (CHLORPROMAZINE HYDROCHLORIDE, PHENOBARBITAL, PROMETHAZINE [Concomitant]
  8. CHLORPROMAZINE HCL [Concomitant]
  9. MUCOSTA (REBAMIPIDE) [Concomitant]
  10. DOGMATYL (SULPIRIDE) [Concomitant]
  11. FAMOTIDINE [Concomitant]
  12. GASTROM (ECABET MONOSODIUM) [Concomitant]
  13. ZYPREXA [Concomitant]
  14. VALPROATE SODIUM [Concomitant]
  15. DEPAS (ETIZOLAM) [Concomitant]
  16. KEISHIKASHAKUYAKUDAIOUTOU (HERBAL EXTRACTS NOS) [Concomitant]
  17. BROTIZOLAM (BROTIZOLAM) [Concomitant]
  18. PAXIL [Concomitant]

REACTIONS (10)
  - ASTHENIA [None]
  - ASTHMA [None]
  - CARDIAC FAILURE [None]
  - CELLULITIS [None]
  - HYPOKINESIA [None]
  - INFECTION [None]
  - MENTAL STATUS CHANGES [None]
  - MIGRAINE [None]
  - PNEUMONIA [None]
  - PYREXIA [None]
